FAERS Safety Report 10074620 (Version 1)
Quarter: 2014Q2

REPORT INFORMATION
  Report Type: Spontaneous
  Country: IT (occurrence: IT)
  Receive Date: 20140414
  Receipt Date: 20140414
  Transmission Date: 20141212
  Serious: Yes (Hospitalization)
  Sender: FDA-Public Use
  Company Number: PHHY2014IT044739

PATIENT
  Age: 76 Year
  Sex: Female

DRUGS (3)
  1. RIVASTIGMINE [Suspect]
     Indication: DEMENTIA ALZHEIMER^S TYPE
     Dosage: 18 MG, DAILY
     Route: 048
     Dates: start: 20140301, end: 20140305
  2. ELOPRAM [Concomitant]
     Dosage: 2 DF, UNK
     Route: 048
  3. CARDIOASPIRIN [Concomitant]
     Dosage: UNK
     Route: 048

REACTIONS (2)
  - Syncope [Recovered/Resolved]
  - Bradyarrhythmia [Recovered/Resolved]
